FAERS Safety Report 9611096 (Version 1)
Quarter: 2013Q4

REPORT INFORMATION
  Report Type: Spontaneous
  Country: US (occurrence: US)
  Receive Date: 20131009
  Receipt Date: 20131009
  Transmission Date: 20140711
  Serious: Yes (Hospitalization, Other)
  Sender: FDA-Public Use
  Company Number: US-GILEAD-2013-0084800

PATIENT
  Age: 79 Year
  Sex: Female

DRUGS (1)
  1. CAYSTON [Suspect]
     Indication: BACTERAEMIA
     Dosage: 75 MG, UNK
     Route: 055
     Dates: start: 20130926

REACTIONS (1)
  - Pneumonia [Recovered/Resolved]
